FAERS Safety Report 11452405 (Version 1)
Quarter: 2015Q3

REPORT INFORMATION
  Report Type: Spontaneous
  Country: US (occurrence: US)
  Receive Date: 20150831
  Receipt Date: 20150831
  Transmission Date: 20151125
  Serious: No
  Sender: FDA-Public Use
  Company Number: US-ELI_LILLY_AND_COMPANY-US200908000129

PATIENT
  Age: 40 Year
  Sex: Female
  Weight: 113.38 kg

DRUGS (4)
  1. DEPAKOTE [Concomitant]
     Active Substance: DIVALPROEX SODIUM
     Dosage: UNK, UNK
     Dates: end: 200905
  2. ABILIFY [Concomitant]
     Active Substance: ARIPIPRAZOLE
  3. CYMBALTA [Suspect]
     Active Substance: DULOXETINE HYDROCHLORIDE
     Indication: FIBROMYALGIA
     Dosage: 60 MG, 2/D
     Dates: start: 200905
  4. NEURONTIN [Concomitant]
     Active Substance: GABAPENTIN
     Dosage: 300 MG, UNK
     Dates: start: 200906

REACTIONS (3)
  - Dizziness [Not Recovered/Not Resolved]
  - Fall [Unknown]
  - Balance disorder [Unknown]

NARRATIVE: CASE EVENT DATE: 200906
